FAERS Safety Report 7169716-0 (Version None)
Quarter: 2010Q4

REPORT INFORMATION
  Report Type: 
  Country: None (occurrence: None)
  Receive Date: 20101206
  Receipt Date: 20091215
  Transmission Date: 20110411
  Serious: Yes (Death)
  Sender: FDA-Public Use
  Company Number: 2010005170

PATIENT
  Age: 50 Year
  Sex: Female

DRUGS (6)
  1. ERLOTINIB (ERLOTINIB) (TABLET) (ERLOTINIB) [Suspect]
     Indication: NON-SMALL CELL LUNG CANCER
     Dosage: 150 MG DAILY, ORAL
     Route: 048
     Dates: start: 20090218, end: 20090317
  2. TRAMADOL HCL [Concomitant]
  3. QUETIAPINE FUMARATE [Concomitant]
  4. EBASTINE [Concomitant]
  5. OXYCODONE HYDROCHLORIDE [Concomitant]
  6. MAGNESIUM [Concomitant]

REACTIONS (1)
  - PNEUMONIA [None]
